FAERS Safety Report 7895462-1 (Version None)
Quarter: 2011Q4

REPORT INFORMATION
  Report Type: 
  Country: None (occurrence: None)
  Receive Date: 20111027
  Receipt Date: 20110825
  Transmission Date: 20120403
  Serious: Yes (Other)
  Sender: FDA-Public Use
  Company Number: 2011000147

PATIENT
  Age: 4 Year
  Sex: Male

DRUGS (2)
  1. CLONIDINE HCL (CLONIDINE HYDROCHLORIDE) [Concomitant]
  2. KAPVAY [Suspect]
     Dosage: 0.1 MG, AT BEDTIME
     Dates: start: 20110818, end: 20110819

REACTIONS (4)
  - HEART RATE INCREASED [None]
  - AGITATION [None]
  - PSYCHOMOTOR HYPERACTIVITY [None]
  - MALAISE [None]
